FAERS Safety Report 14246162 (Version 1)
Quarter: 2017Q4

REPORT INFORMATION
  Report Type: Spontaneous
  Country: US (occurrence: None)
  Receive Date: 20171201
  Receipt Date: 20171201
  Transmission Date: 20180321
  Serious: Yes (Hospitalization)
  Sender: FDA-Public Use
  Company Number: None

PATIENT
  Age: 64 Year
  Sex: Male
  Weight: 92.44 kg

DRUGS (1)
  1. VANCOMYCIN [Suspect]
     Active Substance: VANCOMYCIN
     Indication: BACTERAEMIA
     Route: 042
     Dates: start: 20171030, end: 20171122

REACTIONS (4)
  - Drug reaction with eosinophilia and systemic symptoms [None]
  - Rash maculo-papular [None]
  - Blood urea increased [None]
  - Dermatitis exfoliative [None]

NARRATIVE: CASE EVENT DATE: 20171122
